FAERS Safety Report 22886258 (Version 4)
Quarter: 2023Q4

REPORT INFORMATION
  Report Type: Spontaneous
  Country: US (occurrence: US)
  Receive Date: 20230831
  Receipt Date: 20231018
  Transmission Date: 20240109
  Serious: No
  Sender: FDA-Public Use
  Company Number: US-BIOGEN-2023BI01223445

PATIENT
  Age: 47 Year
  Sex: Female

DRUGS (15)
  1. TYSABRI [Suspect]
     Active Substance: NATALIZUMAB
     Indication: Multiple sclerosis
     Route: 050
     Dates: start: 20150225
  2. RITALIN [Concomitant]
     Active Substance: METHYLPHENIDATE HYDROCHLORIDE
     Route: 050
  3. AIMOVIG [Concomitant]
     Active Substance: ERENUMAB-AOOE
     Route: 050
  4. AMMONIUM LACTATE [Concomitant]
     Active Substance: AMMONIUM LACTATE
     Route: 050
  5. ATENOLOL [Concomitant]
     Active Substance: ATENOLOL
     Route: 050
  6. BACLOFEN [Concomitant]
     Active Substance: BACLOFEN
     Route: 050
  7. BOTOX [Concomitant]
     Active Substance: ONABOTULINUMTOXINA
     Route: 050
  8. CEPHALEXIN [Concomitant]
     Active Substance: CEPHALEXIN
     Route: 050
  9. CICLOPIROX [Concomitant]
     Active Substance: CICLOPIROX
     Route: 050
  10. CLOBETASOL [Concomitant]
     Active Substance: CLOBETASOL
     Route: 050
  11. CLOTRIMAZOLE [Concomitant]
     Active Substance: CLOTRIMAZOLE
     Route: 050
  12. CYCLOBENZAPRINE [Concomitant]
     Active Substance: CYCLOBENZAPRINE
     Route: 050
  13. DIAZEPAM [Concomitant]
     Active Substance: DIAZEPAM
     Route: 050
  14. REXULTI [Concomitant]
     Active Substance: BREXPIPRAZOLE
     Route: 050
  15. TACROLIMUS [Concomitant]
     Active Substance: TACROLIMUS
     Route: 050

REACTIONS (1)
  - Poor venous access [Not Recovered/Not Resolved]

NARRATIVE: CASE EVENT DATE: 20230512
